FAERS Safety Report 7287659-9 (Version None)
Quarter: 2011Q1

REPORT INFORMATION
  Report Type: 
  Country: None (occurrence: None)
  Receive Date: 20110208
  Receipt Date: 20110208
  Transmission Date: 20110831
  Serious: Yes (Life-Threatening)
  Sender: FDA-Public Use
  Company Number: None

PATIENT
  Age: 53 Year
  Sex: Male
  Weight: 84.369 kg

DRUGS (1)
  1. AMBIEN CR [Suspect]

REACTIONS (5)
  - WRONG TECHNIQUE IN DRUG USAGE PROCESS [None]
  - AMNESIA [None]
  - AGGRESSION [None]
  - ALCOHOL USE [None]
  - IMPRISONMENT [None]
